FAERS Safety Report 25562285 (Version 3)
Quarter: 2025Q3

REPORT INFORMATION
  Report Type: Spontaneous
  Country: US (occurrence: US)
  Receive Date: 20250716
  Receipt Date: 20250804
  Transmission Date: 20251020
  Serious: No
  Sender: BAUSCH AND LOMB
  Company Number: US-BAUSCHBL-2025BNL012405

PATIENT
  Sex: Male

DRUGS (1)
  1. VYZULTA [Suspect]
     Active Substance: LATANOPROSTENE BUNOD
     Indication: Glaucoma
     Dosage: IN EVENING
     Route: 065
     Dates: start: 2024

REACTIONS (3)
  - Pain [Not Recovered/Not Resolved]
  - Product temperature excursion issue [Unknown]
  - Product use issue [Unknown]
